FAERS Safety Report 7142540-0 (Version None)
Quarter: 2010Q4

REPORT INFORMATION
  Report Type: 
  Country: None (occurrence: None)
  Receive Date: 20101112
  Receipt Date: 20100804
  Transmission Date: 20110411
  Serious: No
  Sender: FDA-Public Use
  Company Number: 1000015492

PATIENT
  Age: 35 Year
  Sex: Female

DRUGS (2)
  1. SAVELLA [Suspect]
     Dosage: 12.5 MG, (12.5 MG, 1 IN 1 D),ORAL; 25 MG (12.5 MG, 2 IN 1 D), ORAL; 50 MG (25 MG, 2 IN 1 D), ORAL
     Route: 048
  2. SAVELLA [Suspect]
     Dosage: 12.5 MG, (12.5 MG, 1 IN 1 D),ORAL; 25 MG (12.5 MG, 2 IN 1 D), ORAL; 50 MG (25 MG, 2 IN 1 D), ORAL
     Route: 048

REACTIONS (1)
  - NAUSEA [None]
